FAERS Safety Report 6315095-8 (Version None)
Quarter: 2009Q3

REPORT INFORMATION
  Report Type: 
  Country: None (occurrence: None)
  Receive Date: 20090818
  Receipt Date: 20090818
  Transmission Date: 20100115
  Serious: Yes (Hospitalization)
  Sender: FDA-Public Use
  Company Number: None

PATIENT
  Age: 65 Year
  Sex: Male
  Weight: 83.0083 kg

DRUGS (3)
  1. CISPLATIN [Suspect]
     Indication: HEAD AND NECK CANCER
     Dosage: 100 MG/M2 Q 3 WEEKS IV
     Route: 042
     Dates: start: 20090720
  2. CISPLATIN [Suspect]
     Indication: SQUAMOUS CELL CARCINOMA
     Dosage: 100 MG/M2 Q 3 WEEKS IV
     Route: 042
     Dates: start: 20090720
  3. ERLOTINIB [Suspect]
     Dosage: 150MG DAILY PO

REACTIONS (1)
  - DEEP VEIN THROMBOSIS [None]
